FAERS Safety Report 21788935 (Version 1)
Quarter: 2022Q4

REPORT INFORMATION
  Report Type: Spontaneous
  Country: US (occurrence: US)
  Receive Date: 20221228
  Receipt Date: 20221228
  Transmission Date: 20230112
  Serious: No
  Sender: FDA-Public Use
  Company Number: US-IDORSIA-002644-2022-US

PATIENT
  Age: 66 Year
  Sex: Female

DRUGS (1)
  1. QUVIVIQ [Suspect]
     Active Substance: DARIDOREXANT
     Indication: Insomnia
     Dosage: 25 MG, QD
     Route: 048
     Dates: start: 20221213

REACTIONS (8)
  - Pollakiuria [Recovered/Resolved]
  - Headache [Unknown]
  - Feeling cold [Unknown]
  - Hyperhidrosis [Unknown]
  - Middle insomnia [Recovered/Resolved]
  - Nausea [Recovered/Resolved]
  - Therapeutic product effect delayed [Unknown]
  - Product packaging difficult to open [Recovered/Resolved]

NARRATIVE: CASE EVENT DATE: 20221214
